FAERS Safety Report 24074000 (Version 1)
Quarter: 2024Q3

REPORT INFORMATION
  Report Type: Spontaneous
  Country: FR (occurrence: FR)
  Receive Date: 20240710
  Receipt Date: 20240710
  Transmission Date: 20241016
  Serious: No
  Sender: PIERRE FABRE MEDICAMENT
  Company Number: FR-GSKCCFEMEA-Case-01937915_AE-81532

PATIENT
  Age: 27 Year
  Sex: Male

DRUGS (3)
  1. PROPRANOLOL [Suspect]
     Active Substance: PROPRANOLOL HYDROCHLORIDE
     Indication: Product used for unknown indication
     Dosage: 40 MG, QD (1/DAY)
     Route: 065
  2. LORAZEPAM [Suspect]
     Active Substance: LORAZEPAM
     Indication: Anxiety
     Dosage: 1 MG, TID (3/DAY)
     Route: 065
  3. LAMICTAL [Suspect]
     Active Substance: LAMOTRIGINE
     Indication: Product used for unknown indication
     Dosage: 25 MG, QD (1/DAY)
     Route: 065

REACTIONS (4)
  - Confusional state [Unknown]
  - Inappropriate schedule of product administration [Unknown]
  - Product use issue [Unknown]
  - Off label use [Unknown]
